FAERS Safety Report 4848249-8 (Version None)
Quarter: 2005Q4

REPORT INFORMATION
  Report Type: 
  Country: None (occurrence: None)
  Receive Date: 20051207
  Receipt Date: 20051207
  Transmission Date: 20060501
  Serious: Yes (Hospitalization)
  Sender: FDA-Public Use
  Company Number: None

PATIENT
  Age: 51 Year
  Sex: Male
  Weight: 86.4 kg

DRUGS (2)
  1. CETUXIMAB [Suspect]
     Indication: NON-SMALL CELL LUNG CANCER
     Dosage: 50 MG/M2 IV Q WEEK
     Route: 042
     Dates: start: 20051123
  2. ALIMTA [Suspect]
     Dosage: 500 MG/M2, IV, Q3 WKS
     Route: 042
     Dates: start: 20051123

REACTIONS (2)
  - DYSPNOEA [None]
  - PULMONARY EMBOLISM [None]
